FAERS Safety Report 7290086-1 (Version None)
Quarter: 2011Q1

REPORT INFORMATION
  Report Type: 
  Country: None (occurrence: None)
  Receive Date: 20110214
  Receipt Date: 20110204
  Transmission Date: 20110831
  Serious: Yes (Other)
  Sender: FDA-Public Use
  Company Number: BE-SANOFI-AVENTIS-2011SA007577

PATIENT
  Age: 46 Year
  Sex: Female

DRUGS (4)
  1. OMEPRAZOLE [Concomitant]
     Route: 065
  2. TAMOXIFEN CITRATE [Concomitant]
     Route: 065
  3. LEFLUNOMIDE [Suspect]
     Indication: ARTHRITIS
     Route: 048
     Dates: start: 20100501, end: 20110101
  4. EMCONCOR /BEL/ [Concomitant]
     Route: 065

REACTIONS (1)
  - OESTRADIOL INCREASED [None]
